FAERS Safety Report 23267392 (Version 1)
Quarter: 2023Q4

REPORT INFORMATION
  Report Type: Spontaneous
  Country: US (occurrence: None)
  Receive Date: 20231205
  Receipt Date: 20231205
  Transmission Date: 20240110
  Serious: Yes (Disabling)
  Sender: FDA-Public Use
  Company Number: None

PATIENT
  Age: 63 Year
  Sex: Female
  Weight: 51.75 kg

DRUGS (6)
  1. CIPROFLOXACIN [Suspect]
     Active Substance: CIPROFLOXACIN
     Indication: Urinary tract infection
     Dates: start: 20180608, end: 20180613
  2. Pessary and biest hormone cream [Concomitant]
  3. MAGNESIUM [Concomitant]
     Active Substance: MAGNESIUM
  4. D MANNOSE [Concomitant]
  5. COENZYME Q10 [Concomitant]
     Active Substance: DIETARY SUPPLEMENT\UBIDECARENONE
  6. VITAMIN D3 [Concomitant]
     Active Substance: CHOLECALCIFEROL

REACTIONS (18)
  - Malaise [None]
  - Insomnia [None]
  - Suicidal ideation [None]
  - Nausea [None]
  - Pain [None]
  - Headache [None]
  - Eye pain [None]
  - Ear pain [None]
  - Toothache [None]
  - Vision blurred [None]
  - Chest pain [None]
  - Fatigue [None]
  - Brain fog [None]
  - Nightmare [None]
  - Palpitations [None]
  - Anxiety [None]
  - Depression [None]
  - Neuropathy peripheral [None]

NARRATIVE: CASE EVENT DATE: 20180608
